FAERS Safety Report 25786139 (Version 1)
Quarter: 2025Q3

REPORT INFORMATION
  Report Type: Spontaneous
  Country: US (occurrence: None)
  Receive Date: 20250909
  Receipt Date: 20250909
  Transmission Date: 20251021
  Serious: Yes (Hospitalization)
  Sender: FDA-CTU
  Company Number: None

PATIENT
  Age: 53 Year
  Sex: Male
  Weight: 103.5 kg

DRUGS (3)
  1. ZEPBOUND [Suspect]
     Active Substance: TIRZEPATIDE
     Indication: Weight decreased
     Route: 058
     Dates: start: 20250807, end: 20250828
  2. SILDENAFIL [Concomitant]
     Active Substance: SILDENAFIL
  3. UNISOM SLEEPTABS [Concomitant]
     Active Substance: DOXYLAMINE SUCCINATE

REACTIONS (4)
  - Small intestinal obstruction [None]
  - Ileus [None]
  - Red blood cell count increased [None]
  - Impaired gastric emptying [None]

NARRATIVE: CASE EVENT DATE: 20250903
